FAERS Safety Report 23037291 (Version 1)
Quarter: 2023Q4

REPORT INFORMATION
  Report Type: Spontaneous
  Country: US (occurrence: US)
  Receive Date: 20231006
  Receipt Date: 20231006
  Transmission Date: 20240110
  Serious: Yes (Other)
  Sender: FDA-Public Use
  Company Number: US-JNJFOC-20230964082

PATIENT
  Sex: Male

DRUGS (1)
  1. RYBREVANT [Suspect]
     Active Substance: AMIVANTAMAB-VMJW
     Indication: Product used for unknown indication
     Route: 042

REACTIONS (7)
  - Metastases to liver [Unknown]
  - Ascites [Unknown]
  - Musculoskeletal pain [Not Recovered/Not Resolved]
  - Alopecia [Recovered/Resolved]
  - Paronychia [Unknown]
  - Dermatitis acneiform [Recovered/Resolved]
  - Off label use [Unknown]
